FAERS Safety Report 11245133 (Version 1)
Quarter: 2015Q3

REPORT INFORMATION
  Report Type: Spontaneous
  Country: US (occurrence: US)
  Receive Date: 20150707
  Receipt Date: 20150707
  Transmission Date: 20151125
  Serious: No
  Sender: FDA-Public Use
  Company Number: US-BAYER-2015-371218

PATIENT
  Weight: 115.65 kg

DRUGS (4)
  1. SYNTHROID [Concomitant]
     Active Substance: LEVOTHYROXINE SODIUM
     Indication: THYROIDECTOMY
     Dosage: 175 ?G, UNK
     Route: 065
     Dates: start: 201409, end: 201501
  2. HYDROXYZINE HCL [Concomitant]
     Active Substance: HYDROXYZINE HYDROCHLORIDE
     Indication: ECZEMA
  3. CLARITIN [Suspect]
     Active Substance: LORATADINE
  4. SYNTHROID [Concomitant]
     Active Substance: LEVOTHYROXINE SODIUM
     Indication: THYROID CANCER
     Dosage: 200 ?G, UNK

REACTIONS (7)
  - Pruritus generalised [Unknown]
  - Drug hypersensitivity [None]
  - Fatigue [Recovered/Resolved]
  - Pruritus [None]
  - Skin haemorrhage [Unknown]
  - Fatigue [Recovered/Resolved]
  - Urticaria [Unknown]

NARRATIVE: CASE EVENT DATE: 201409
